FAERS Safety Report 9213079 (Version 1)
Quarter: 2013Q1

REPORT INFORMATION
  Report Type: Spontaneous
  Country: US (occurrence: None)
  Receive Date: 20120820
  Receipt Date: 20120820
  Transmission Date: 20140127
  Serious: No
  Sender: FDA-Public Use
  Company Number: 1000036885

PATIENT
  Age: 30 Year
  Sex: Female

DRUGS (2)
  1. VIIBRYD [Suspect]
     Indication: DEPRESSION
     Dosage: 10MG 1 IN 1 D
     Route: 048
     Dates: start: 201206, end: 201206
  2. CAFFEINE (CAFFEINE) [Suspect]

REACTIONS (2)
  - Palpitations [None]
  - Chest pain [None]
